FAERS Safety Report 19350125 (Version 1)
Quarter: 2021Q2

REPORT INFORMATION
  Report Type: Spontaneous
  Country: US (occurrence: US)
  Receive Date: 20210531
  Receipt Date: 20210531
  Transmission Date: 20210717
  Serious: Yes (Death, Other)
  Sender: FDA-Public Use
  Company Number: US-SA-2021SA178753

PATIENT
  Age: 46 Year
  Sex: Female

DRUGS (1)
  1. ZANTAC [Suspect]
     Active Substance: RANITIDINE HYDROCHLORIDE
     Indication: GASTROOESOPHAGEAL REFLUX DISEASE
     Dosage: 150 MG, QD
     Dates: start: 200604, end: 201509

REACTIONS (3)
  - Ovarian cancer [Fatal]
  - Lung carcinoma cell type unspecified stage IV [Fatal]
  - Breast cancer stage IV [Fatal]

NARRATIVE: CASE EVENT DATE: 20151211
